FAERS Safety Report 8358455 (Version 3)
Quarter: 2012Q4

REPORT INFORMATION
  Report Type: 
  Country: TW (occurrence: TW)
  Receive Date: 20120127
  Receipt Date: 20121105
  Transmission Date: 20130627
  Serious: Yes (Hospitalization)
  Sender: FDA-Public Use
  Company Number: PHHO2009TW13833

PATIENT
  Age: 56 Year
  Sex: Male
  Weight: 65 kg

DRUGS (5)
  1. FLUOROURACIL [Suspect]
     Indication: CHEMOTHERAPY
     Dosage: 700 mg, UNK
     Route: 042
     Dates: start: 20091029, end: 20091030
  2. FLUOROURACIL [Suspect]
     Dosage: 1050 mg, TID
     Route: 042
     Dates: start: 20091029
  3. AFINITOR [Suspect]
     Indication: METASTATIC RENAL CELL CARCINOMA
     Dosage: 10 mg, QD
     Route: 048
     Dates: start: 20090406, end: 20091023
  4. AVASTIN [Suspect]
     Indication: METASTATIC RENAL CELL CARCINOMA
     Dosage: 640 mg, Bi-weekly
     Route: 042
     Dates: start: 20090406, end: 20091019
  5. AVASTIN [Suspect]
     Dosage: 640 mg, Bi-weekly
     Route: 042
     Dates: start: 20091028, end: 20091028

REACTIONS (4)
  - Bronchitis [Recovered/Resolved]
  - Pyrexia [Recovered/Resolved]
  - Neoplasm progression [Not Recovered/Not Resolved]
  - Malignant neoplasm progression [Not Recovered/Not Resolved]
